FAERS Safety Report 6287012-0 (Version None)
Quarter: 2009Q3

REPORT INFORMATION
  Report Type: 
  Country: None (occurrence: None)
  Receive Date: 20090727
  Receipt Date: 20090727
  Transmission Date: 20100115
  Serious: Yes (Hospitalization, Disabling, Other)
  Sender: FDA-Public Use
  Company Number: None

PATIENT
  Sex: Female
  Weight: 58.9676 kg

DRUGS (3)
  1. ACTONEL [Suspect]
     Indication: OSTEOPOROSIS
     Dosage: 150 MGM MONTHLY ORAL
     Route: 048
     Dates: start: 20081001
  2. ACTONEL [Suspect]
     Indication: OSTEOPOROSIS
     Dosage: 150 MGM MONTHLY ORAL
     Route: 048
     Dates: start: 20090301
  3. ACTONEL [Suspect]

REACTIONS (9)
  - AREFLEXIA [None]
  - BACK INJURY [None]
  - BONE PAIN [None]
  - FALL [None]
  - HEAD INJURY [None]
  - LOSS OF CONTROL OF LEGS [None]
  - MUSCULOSKELETAL STIFFNESS [None]
  - MYALGIA [None]
  - NEUROPATHY PERIPHERAL [None]
